FAERS Safety Report 8152965-2 (Version None)
Quarter: 2012Q1

REPORT INFORMATION
  Report Type: 
  Country: None (occurrence: None)
  Receive Date: 20120221
  Receipt Date: 20120210
  Transmission Date: 20120608
  Serious: Yes (Other)
  Sender: FDA-Public Use
  Company Number: GB-SANOFI-AVENTIS-2012SA009172

PATIENT
  Age: 24 Year
  Sex: Male

DRUGS (12)
  1. CLOZAPINE [Suspect]
     Route: 065
     Dates: start: 20050825, end: 20051221
  2. CLOZAPINE [Suspect]
     Route: 065
     Dates: start: 20060613, end: 20060904
  3. SERTRALINE HYDROCHLORIDE [Concomitant]
     Route: 065
     Dates: start: 20090420
  4. RIFAMPIN AND ISONIAZID [Suspect]
     Indication: TUBERCULOSIS
     Route: 065
     Dates: start: 20110719, end: 20120111
  5. CLOZAPINE [Suspect]
     Indication: SCHIZOPHRENIA
     Route: 065
     Dates: start: 20090428, end: 20120110
  6. DEPAKOTE [Concomitant]
     Route: 065
     Dates: start: 20091120
  7. QUETIAPINE [Concomitant]
     Route: 065
     Dates: start: 20090907
  8. DOCUSATE/SENNA ALEXANDRINA [Concomitant]
     Route: 065
     Dates: start: 20070828
  9. PIRENZEPINE [Concomitant]
     Route: 065
     Dates: start: 20090920
  10. CLONAZEPAM [Concomitant]
     Route: 065
     Dates: start: 20110913
  11. CLONAZEPAM [Concomitant]
     Route: 065
     Dates: start: 20110913
  12. LORAZEPAM [Concomitant]
     Route: 065
     Dates: start: 20110913

REACTIONS (6)
  - TACHYCARDIA [None]
  - TUBERCULOSIS [None]
  - DRUG LEVEL INCREASED [None]
  - DRUG LEVEL DECREASED [None]
  - LOWER RESPIRATORY TRACT INFECTION [None]
  - DRUG INTERACTION [None]
